FAERS Safety Report 23181861 (Version 1)
Quarter: 2023Q4

REPORT INFORMATION
  Report Type: Report from Study
  Country: CA (occurrence: CA)
  Receive Date: 20231114
  Receipt Date: 20231114
  Transmission Date: 20240110
  Serious: Yes (Hospitalization)
  Sender: FDA-Public Use
  Company Number: CA-JNJFOC-20231018688

PATIENT
  Age: 18 Year
  Sex: Female

DRUGS (1)
  1. REMICADE [Suspect]
     Active Substance: INFLIXIMAB
     Indication: Colitis ulcerative
     Dosage: EXPIRY DATE: 01-MAR-2026
     Route: 042
     Dates: start: 20221001

REACTIONS (2)
  - Infection [Recovered/Resolved]
  - Clostridium difficile infection [Recovered/Resolved]

NARRATIVE: CASE EVENT DATE: 20230923
